FAERS Safety Report 5087983-4 (Version None)
Quarter: 2006Q3

REPORT INFORMATION
  Report Type: 
  Country: None (occurrence: None)
  Receive Date: 20060824
  Receipt Date: 20060818
  Transmission Date: 20061208
  Serious: Yes (Hospitalization)
  Sender: FDA-Public Use
  Company Number: BE-JNJFOC-20060801212

PATIENT
  Age: 68 Year
  Sex: Male
  Weight: 59.5 kg

DRUGS (3)
  1. REMICADE [Suspect]
     Indication: CROHN'S DISEASE
     Dosage: 13 INFUSIONS
     Route: 042
  2. AZATHIOPRINE [Concomitant]
     Indication: CROHN'S DISEASE
     Route: 065
  3. CIPROFLOXACIN HCL [Concomitant]
     Route: 065

REACTIONS (1)
  - DISSEMINATED TUBERCULOSIS [None]
